FAERS Safety Report 22398731 (Version 1)
Quarter: 2023Q2

REPORT INFORMATION
  Report Type: Spontaneous
  Country: US (occurrence: US)
  Receive Date: 20230602
  Receipt Date: 20230602
  Transmission Date: 20230721
  Serious: Yes (Other)
  Sender: FDA-Public Use
  Company Number: US-MYLANLABS-2023M1056571

PATIENT
  Age: 56 Year
  Sex: Male

DRUGS (12)
  1. MESALAMINE [Suspect]
     Active Substance: MESALAMINE
     Indication: Diarrhoea
     Dosage: UNK
     Route: 054
  2. MESALAMINE [Suspect]
     Active Substance: MESALAMINE
     Indication: Mucosal haemorrhage
  3. MESALAMINE [Suspect]
     Active Substance: MESALAMINE
     Indication: Rectal haemorrhage
  4. RIFAXIMIN [Suspect]
     Active Substance: RIFAXIMIN
     Indication: Diarrhoea
     Dosage: UNK
     Route: 065
  5. RIFAXIMIN [Suspect]
     Active Substance: RIFAXIMIN
     Indication: Mucosal haemorrhage
  6. RIFAXIMIN [Suspect]
     Active Substance: RIFAXIMIN
     Indication: Rectal haemorrhage
  7. BUDESONIDE [Concomitant]
     Active Substance: BUDESONIDE
     Indication: Diarrhoea
     Dosage: UNK
     Route: 048
  8. BUDESONIDE [Concomitant]
     Active Substance: BUDESONIDE
     Indication: Mucosal haemorrhage
  9. BUDESONIDE [Concomitant]
     Active Substance: BUDESONIDE
     Indication: Rectal haemorrhage
  10. BUDESONIDE [Concomitant]
     Active Substance: BUDESONIDE
     Indication: Diarrhoea
     Dosage: UNK
     Route: 065
  11. BUDESONIDE [Concomitant]
     Active Substance: BUDESONIDE
     Indication: Mucosal haemorrhage
  12. BUDESONIDE [Concomitant]
     Active Substance: BUDESONIDE
     Indication: Rectal haemorrhage

REACTIONS (1)
  - Drug ineffective [Unknown]
